FAERS Safety Report 25207843 (Version 5)
Quarter: 2025Q4

REPORT INFORMATION
  Report Type: Spontaneous
  Country: CA (occurrence: CA)
  Receive Date: 20250417
  Receipt Date: 20251112
  Transmission Date: 20260118
  Serious: Yes (Hospitalization, Other)
  Sender: PFIZER
  Company Number: CA-PFIZER INC-202500054748

PATIENT
  Age: 31 Year
  Sex: Male

DRUGS (4)
  1. ABRILADA [Suspect]
     Active Substance: ADALIMUMAB-AFZB
     Indication: Crohn^s disease
     Dosage: 1 DF,  160 MG AT WEEK 0, 80 MG AT WEEK 2 AND 40MG EVERY OTHER WEEK BEGINNING AT WEEK 4
     Route: 058
     Dates: start: 20250220
  2. ABRILADA [Suspect]
     Active Substance: ADALIMUMAB-AFZB
     Dosage: 1 DF, 160 MG AT WEEK 0, 80 MG AT WEEK 2 AND 40MG EVERY OTHER WEEK BEGINNING AT WEEK 4
     Route: 058
     Dates: start: 2025
  3. CORTISONE [Concomitant]
     Active Substance: CORTISONE
     Dosage: 15 MG (IN DECREASING DOSE - 15 MG THIS WEEK)
  4. PREDNISONE [Concomitant]
     Active Substance: PREDNISONE
     Dosage: UNK

REACTIONS (4)
  - Intestinal stenosis [Not Recovered/Not Resolved]
  - Intestinal obstruction [Unknown]
  - Therapeutic product effect incomplete [Not Recovered/Not Resolved]
  - Faecal volume decreased [Not Recovered/Not Resolved]

NARRATIVE: CASE EVENT DATE: 20250101
